FAERS Safety Report 12480297 (Version 1)
Quarter: 2016Q2

REPORT INFORMATION
  Report Type: Spontaneous
  Country: None (occurrence: FR)
  Receive Date: 20160620
  Receipt Date: 20160620
  Transmission Date: 20160815
  Serious: Yes (Life-Threatening, Hospitalization, Other)
  Sender: FDA-Public Use
  Company Number: FR-MERCK KGAA-1054014

PATIENT

DRUGS (1)
  1. NOVOTHYROX [Suspect]
     Active Substance: LEVOTHYROXINE SODIUM

REACTIONS (7)
  - Cardio-respiratory arrest [None]
  - Lung disorder [None]
  - Suicide attempt [None]
  - Dysphonia [None]
  - Coma [None]
  - Toxicity to various agents [None]
  - Acute respiratory distress syndrome [None]
